FAERS Safety Report 9809143 (Version 1)
Quarter: 2014Q1

REPORT INFORMATION
  Report Type: Spontaneous
  Country: FR (occurrence: FR)
  Receive Date: 20140110
  Receipt Date: 20140110
  Transmission Date: 20141002
  Serious: Yes (Hospitalization)
  Sender: FDA-Public Use
  Company Number: FR-ABBVIE-14P-056-1188490-00

PATIENT
  Age: 68 Year
  Sex: Male

DRUGS (6)
  1. LIPANTHYL [Suspect]
     Indication: PRODUCT USED FOR UNKNOWN INDICATION
     Route: 048
     Dates: start: 201309, end: 20131126
  2. IOMERON [Suspect]
     Indication: SCAN BRAIN
     Route: 042
     Dates: start: 20131125, end: 20131126
  3. IOMERON [Suspect]
     Dates: start: 20131119
  4. ALLOPURINOL [Suspect]
     Indication: GOUT
     Dates: end: 20131126
  5. PROFENID [Concomitant]
     Indication: PRODUCT USED FOR UNKNOWN INDICATION
     Route: 048
  6. DOLIPRANE [Concomitant]
     Indication: PRODUCT USED FOR UNKNOWN INDICATION
     Route: 048

REACTIONS (1)
  - Toxic skin eruption [Recovered/Resolved]
